FAERS Safety Report 24446469 (Version 1)
Quarter: 2024Q4

REPORT INFORMATION
  Report Type: Spontaneous
  Country: CH (occurrence: CH)
  Receive Date: 20241016
  Receipt Date: 20241016
  Transmission Date: 20250114
  Serious: Yes (Hospitalization, Other)
  Sender: PFIZER
  Company Number: None

PATIENT
  Age: 74 Year
  Sex: Male
  Weight: 89.3 kg

DRUGS (32)
  1. ALDACTONE [Interacting]
     Active Substance: SPIRONOLACTONE
     Dosage: 25 MG, 1X/DAY
     Route: 048
     Dates: start: 20231124
  2. LITHIUM CARBONATE [Interacting]
     Active Substance: LITHIUM CARBONATE
     Dosage: 12.2 MMOL, 2X/DAY 1-0-1-0
     Route: 048
     Dates: start: 2017, end: 20240605
  3. QUETIAPINE FUMARATE [Interacting]
     Active Substance: QUETIAPINE FUMARATE
     Indication: Restlessness
     Dosage: 25 MG, 1X/DAY
     Route: 048
     Dates: start: 20240503
  4. QUETIAPINE FUMARATE [Interacting]
     Active Substance: QUETIAPINE FUMARATE
     Dosage: MAX. 6X/DAYAS NECESSARY
     Route: 048
  5. PREGABALIN [Interacting]
     Active Substance: PREGABALIN
     Dosage: 150 MG, 2X/DAY
     Route: 048
     Dates: start: 20240314
  6. TORSEMIDE [Interacting]
     Active Substance: TORSEMIDE
     Dosage: 10 MG, 1X/DAY
     Route: 048
     Dates: start: 20240604
  7. BRINTELLIX [Concomitant]
     Active Substance: VORTIOXETINE HYDROBROMIDE
     Dosage: 10 MG, 1X/DAY
     Route: 048
     Dates: start: 20240527
  8. ATROVENT [Concomitant]
     Active Substance: IPRATROPIUM BROMIDE
     Dosage: 250 UG, 2X/DAY
     Route: 055
     Dates: start: 20230609
  9. SPIRIVA [Concomitant]
     Active Substance: TIOTROPIUM BROMIDE MONOHYDRATE
     Dosage: 2.5 MCG TIOTROPIUM PER SPRAY SHOT
     Route: 055
     Dates: start: 20230713
  10. VENTOLIN [Concomitant]
     Active Substance: ALBUTEROL SULFATE
     Indication: Dyspnoea
     Dosage: 0.25 ML, 2X/DAY
     Route: 055
     Dates: start: 20230609
  11. VENTOLIN [Concomitant]
     Active Substance: ALBUTEROL SULFATE
     Dosage: MAX. 3X/DAY FOR BREATHING DIFFICULTIES
     Route: 055
  12. DUTASTERIDE\TAMSULOSIN [Concomitant]
     Active Substance: DUTASTERIDE\TAMSULOSIN
     Dosage: 1 DF, 1X/DAY
     Route: 048
     Dates: start: 20240528
  13. ATORVASTATIN [Concomitant]
     Active Substance: ATORVASTATIN
     Dosage: 20 MG, 1X/DAY
     Route: 048
     Dates: start: 20191130
  14. PANTOPRAZOLE SODIUM [Concomitant]
     Active Substance: PANTOPRAZOLE SODIUM
     Dosage: 40 MG, 1X/DAY
     Route: 048
     Dates: start: 20190226
  15. NIZORAL [Concomitant]
     Active Substance: KETOCONAZOLE
     Dosage: 1 DF, 1X/DAY
     Route: 003
     Dates: start: 20201215
  16. CHOLECALCIFEROL [Concomitant]
     Active Substance: CHOLECALCIFEROL
     Dosage: 2 DF, 1X/DAY
     Dates: start: 20221122
  17. THIAMINE HYDROCHLORIDE [Concomitant]
     Active Substance: THIAMINE HYDROCHLORIDE
     Dosage: 300 MG, 1X/DAY
     Route: 048
     Dates: start: 20240316
  18. ACETAMINOPHEN [Concomitant]
     Active Substance: ACETAMINOPHEN
     Dosage: 1000 MG, 4X/DAY
     Route: 048
     Dates: start: 20240316
  19. TRAZODONE HYDROCHLORIDE [Concomitant]
     Active Substance: TRAZODONE HYDROCHLORIDE
     Dosage: 100 MG, 1X/DAY
     Route: 048
     Dates: start: 20220419
  20. LACRI VISION [HYALURONATE SODIUM] [Concomitant]
     Dosage: MAX. 4X/DAY
     Route: 047
  21. NOVALGIN (METAMIZOLE SODIUM) [Concomitant]
     Active Substance: METAMIZOLE SODIUM
     Indication: Pain
     Dosage: MAX. 6X/DAY FOR PAIN
     Route: 048
  22. NITROGLYCERIN [Concomitant]
     Active Substance: NITROGLYCERIN
     Indication: Angina pectoris
     Dosage: MAX. 1X/DAY FOR HEART PAIN
     Route: 048
  23. LEVOCETIRIZIN MEPHA [Concomitant]
     Indication: Arthropod sting
     Dosage: MAX. 2X/DAY
     Route: 048
  24. DICLOFENAC SODIUM [Concomitant]
     Active Substance: DICLOFENAC SODIUM
     Indication: Arthralgia
     Dosage: MAX. 1X/DAY FRO PAIN IN THE LEFT ELBOW
     Route: 003
  25. RINOSEDIN [Concomitant]
     Indication: Nasal congestion
     Dosage: UNK, AS NEEDED
     Route: 045
  26. DOMPERIDONE [Concomitant]
     Active Substance: DOMPERIDONE
     Indication: Nausea
     Dosage: MAX. 1X/DAY
     Route: 048
  27. OXYCODONE HYDROCHLORIDE [Concomitant]
     Active Substance: OXYCODONE HYDROCHLORIDE
     Indication: Pain
     Dosage: MAX. 4X/DAY
     Route: 048
  28. PREDNISONE [Concomitant]
     Active Substance: PREDNISONE
     Indication: Arthropod sting
     Dosage: MAX. 2X/DAY FOR WASP STING
     Route: 048
  29. XANAX [Concomitant]
     Active Substance: ALPRAZOLAM
     Indication: Anxiety
     Dosage: 0.5 MG, AS NEEDED FOR FEAR OF DENTIST
  30. SODIUM PICOSULFATE [Concomitant]
     Active Substance: SODIUM PICOSULFATE
     Indication: Constipation
     Dosage: 20 DROP/DAY FOR CONSTIPATION
     Route: 048
  31. CODEINE PHOSPHATE [Concomitant]
     Active Substance: CODEINE PHOSPHATE
     Indication: Cough
     Dosage: 30 GTT/DAY FOR COUGH
     Route: 048
  32. RESORBAN [Concomitant]
     Indication: Cough
     Dosage: UNK, AS NEEDED

REACTIONS (16)
  - Toxicity to various agents [Recovered/Resolved]
  - Disturbance in attention [Recovering/Resolving]
  - Apathy [Recovering/Resolving]
  - Tremor [Recovering/Resolving]
  - Urinary tract infection bacterial [Recovered/Resolved]
  - Acute kidney injury [Unknown]
  - Haematemesis [Unknown]
  - Coma scale abnormal [Unknown]
  - Somnolence [Unknown]
  - Leukocytosis [Unknown]
  - Atrial fibrillation [Unknown]
  - Drug interaction [Unknown]
  - Blood sodium decreased [Recovered/Resolved]
  - Blood potassium increased [Recovered/Resolved]
  - Constipation [Unknown]
  - Vomiting [Unknown]

NARRATIVE: CASE EVENT DATE: 20240302
